FAERS Safety Report 14797958 (Version 1)
Quarter: 2018Q2

REPORT INFORMATION
  Report Type: Spontaneous
  Country: GB (occurrence: GB)
  Receive Date: 20180424
  Receipt Date: 20180424
  Transmission Date: 20180711
  Serious: Yes (Other)
  Sender: FDA-Public Use
  Company Number: GB-AUROBINDO-AUR-APL-2018-021902

PATIENT
  Age: 21 Year
  Sex: Female
  Weight: 57.6 kg

DRUGS (11)
  1. VITAMIN D                          /00107901/ [Concomitant]
     Active Substance: ERGOCALCIFEROL
     Indication: PRODUCT USED FOR UNKNOWN INDICATION
     Dosage: 3 DOSAGE FORM, ONCE A DAY
     Route: 065
  2. BETAMETHASONE VALERATE. [Concomitant]
     Active Substance: BETAMETHASONE VALERATE
     Indication: PRODUCT USED FOR UNKNOWN INDICATION
     Dosage: UNK
     Route: 061
  3. FEXOFENADINE [Concomitant]
     Active Substance: FEXOFENADINE\FEXOFENADINE HYDROCHLORIDE
     Indication: PRODUCT USED FOR UNKNOWN INDICATION
     Dosage: 180 MILLIGRAM, ONCE A DAY
     Route: 065
  4. BISACODYL. [Concomitant]
     Active Substance: BISACODYL
     Indication: PRODUCT USED FOR UNKNOWN INDICATION
     Dosage: 5 MILLIGRAM, 1-2 AT NIGHT
  5. VIEKIRAX [Suspect]
     Active Substance: OMBITASVIR\PARITAPREVIR\RITONAVIR
     Indication: CHRONIC HEPATITIS C
     Dosage: 2 DOSAGE FORM, ONCE A DAY
     Dates: start: 20171007, end: 20171230
  6. METHYLPHENIDATE HYDROCHLORIDE. [Concomitant]
     Active Substance: METHYLPHENIDATE HYDROCHLORIDE
     Indication: PRODUCT USED FOR UNKNOWN INDICATION
     Dosage: 180 MILLIGRAM, ONCE A DAY
     Route: 065
  7. RIBAVIRIN. [Suspect]
     Active Substance: RIBAVIRIN
     Indication: CHRONIC HEPATITIS C
     Dosage: 400 MILLIGRAM, ONCE A DAY, (VIEKIRAX X2 DAILY. EXVIERA X1 TWICE A DAY)
     Route: 065
     Dates: start: 20171007, end: 20171230
  8. EXVIERA                            /08341301/ [Suspect]
     Active Substance: DASABUVIR
     Indication: CHRONIC HEPATITIS C
     Dosage: 2 DOSAGE FORM, ONCE A DAY
     Route: 048
     Dates: start: 20171007, end: 20171230
  9. CROTAMITON [Concomitant]
     Active Substance: CROTAMITON
     Indication: PRODUCT USED FOR UNKNOWN INDICATION
     Dosage: UNK
     Route: 061
  10. CYCLIZINE [Concomitant]
     Active Substance: CYCLIZINE
     Indication: PRODUCT USED FOR UNKNOWN INDICATION
     Dosage: 150 MILLIGRAM, ONCE A DAY
     Route: 065
  11. SALBUTAMOL [Concomitant]
     Active Substance: ALBUTEROL
     Indication: PRODUCT USED FOR UNKNOWN INDICATION
     Dosage: UNK
     Route: 065

REACTIONS (2)
  - Maternal exposure before pregnancy [Unknown]
  - Ectopic pregnancy [Unknown]
